FAERS Safety Report 14749999 (Version 1)
Quarter: 2018Q2

REPORT INFORMATION
  Report Type: Report from Study
  Country: RO (occurrence: RO)
  Receive Date: 20180412
  Receipt Date: 20180412
  Transmission Date: 20180711
  Serious: Yes (Hospitalization, Other)
  Sender: FDA-Public Use
  Company Number: RO-ROCHE-2098989

PATIENT

DRUGS (6)
  1. RIBAVIRIN. [Suspect]
     Active Substance: RIBAVIRIN
     Indication: HEPATITIS C
     Dosage: 1000 MG/DAY IN PATIENTS WEIGHING {75 KG OR 1200 MG/DAY IN THOSE WEIGHING }75 KG
     Route: 065
  2. RIBAVIRIN. [Suspect]
     Active Substance: RIBAVIRIN
     Indication: HEPATIC CIRRHOSIS
  3. DASABUVIR [Suspect]
     Active Substance: DASABUVIR
     Indication: HEPATIC CIRRHOSIS
     Route: 065
  4. DASABUVIR [Suspect]
     Active Substance: DASABUVIR
     Indication: HEPATITIS C
  5. OMBITASVIR/PARITAPREVIR/RITONAVIR [Suspect]
     Active Substance: OMBITASVIR\PARITAPREVIR\RITONAVIR
     Indication: HEPATITIS C
     Dosage: 25/150/100 MG
     Route: 065
  6. OMBITASVIR/PARITAPREVIR/RITONAVIR [Suspect]
     Active Substance: OMBITASVIR\PARITAPREVIR\RITONAVIR
     Indication: HEPATIC CIRRHOSIS

REACTIONS (21)
  - Nausea [Unknown]
  - Vomiting [Unknown]
  - Pruritus [Unknown]
  - Abdominal pain [Unknown]
  - Oedema peripheral [Unknown]
  - Hyperkalaemia [Unknown]
  - Asthenia [Unknown]
  - Insomnia [Unknown]
  - Rash [Unknown]
  - Hyponatraemia [Unknown]
  - Anaemia [Unknown]
  - Myalgia [Unknown]
  - Ascites [Unknown]
  - Acute kidney injury [Unknown]
  - Fatigue [Unknown]
  - Pancreatic enzymes increased [Unknown]
  - Hyperbilirubinaemia [Unknown]
  - Diarrhoea [Unknown]
  - Headache [Unknown]
  - Ventricular extrasystoles [Unknown]
  - Arthralgia [Unknown]
